FAERS Safety Report 20461553 (Version 2)
Quarter: 2022Q1

REPORT INFORMATION
  Report Type: Other
  Country: DE (occurrence: DE)
  Receive Date: 20220211
  Receipt Date: 20220211
  Transmission Date: 20220423
  Serious: No
  Sender: FDA-Public Use
  Company Number: DE-LUPIN PHARMACEUTICALS INC.-2022-01831

PATIENT
  Age: 35 Year
  Sex: Female
  Weight: 92 kg

DRUGS (11)
  1. QUETIAPINE FUMARATE [Suspect]
     Active Substance: QUETIAPINE FUMARATE
     Indication: Bipolar disorder
     Dosage: 100 MG, QD
     Route: 048
     Dates: start: 20191125, end: 20200811
  2. FLUVOXAMINE [Suspect]
     Active Substance: FLUVOXAMINE
     Indication: Depression
     Dosage: 300 MG, QD
     Route: 048
     Dates: start: 20191125, end: 20200811
  3. LITHIUM [Suspect]
     Active Substance: LITHIUM
     Indication: Bipolar disorder
     Dosage: 900 MILLIGRAM, QD
     Route: 048
     Dates: start: 20191125, end: 20200811
  4. ESOMEPRAZOLE [Concomitant]
     Active Substance: ESOMEPRAZOLE
     Indication: Gastrooesophageal reflux disease
     Dosage: 40 MG, QD
     Route: 048
     Dates: start: 20191125, end: 20200811
  5. CARBAMAZEPINE [Concomitant]
     Active Substance: CARBAMAZEPINE
     Indication: Bipolar disorder
     Dosage: 200 MG, QD, REDUCED STRAIGHT
     Route: 048
     Dates: start: 20191125, end: 20200130
  6. BENSERAZIDE\LEVODOPA [Concomitant]
     Active Substance: BENSERAZIDE\LEVODOPA
     Indication: Restless legs syndrome
     Dosage: UNK,100 [MG/D ] / 25 [MG/D ]
     Route: 048
  7. HUMALOG [Concomitant]
     Active Substance: INSULIN LISPRO
     Indication: Gestational diabetes
     Dosage: UNK
     Route: 058
  8. EFEROX [Concomitant]
     Active Substance: LEVOTHYROXINE SODIUM
     Indication: Hypothyroidism
     Dosage: 100 MICROGRAM, QD,100 [MICROGRAM/D (BIS 75) ]
     Route: 048
     Dates: start: 20191125, end: 20200811
  9. MEPERIDINE [Concomitant]
     Active Substance: MEPERIDINE
     Indication: Biliary colic
     Dosage: 50 MG, PRN, IF NECESSARY
     Route: 058
  10. MEPERIDINE [Concomitant]
     Active Substance: MEPERIDINE
     Indication: Cholelithiasis
  11. PIRITRAMIDE [Concomitant]
     Active Substance: PIRITRAMIDE
     Indication: Cholelithiasis
     Dosage: UNK,ONCE OR TWICE? AFTER THE 1ST TRIMESTER
     Route: 058

REACTIONS (1)
  - Exposure during pregnancy [Unknown]

NARRATIVE: CASE EVENT DATE: 20191125
